FAERS Safety Report 20714172 (Version 1)
Quarter: 2022Q2

REPORT INFORMATION
  Report Type: Spontaneous
  Country: US (occurrence: None)
  Receive Date: 20220414
  Receipt Date: 20220414
  Transmission Date: 20220721
  Serious: No
  Sender: FDA-Public Use
  Company Number: None

PATIENT
  Sex: Male

DRUGS (1)
  1. SPRAVATO [Suspect]
     Active Substance: ESKETAMINE
     Indication: Major depression
     Dosage: FREQUENCY : EVERY OTHER WEEK;?OTHER ROUTE : INTRANASALLY;?
     Route: 050
     Dates: start: 20220408

REACTIONS (1)
  - Drug ineffective [None]
